FAERS Safety Report 8517176-7 (Version None)
Quarter: 2012Q3

REPORT INFORMATION
  Report Type: 
  Country: None (occurrence: None)
  Receive Date: 20120718
  Receipt Date: 20120705
  Transmission Date: 20120928
  Serious: Yes (Hospitalization, Other)
  Sender: FDA-Public Use
  Company Number: IN-COVIDIEN/TYCO HEALTHCARE/MALLINCKRODT-T201201490

PATIENT
  Age: 40 Year
  Sex: Female

DRUGS (1)
  1. SODIUM IODIDE I 131 [Suspect]
     Indication: HYPERTHYROIDISM
     Dosage: 5 MCI, UNK

REACTIONS (5)
  - TETANY [None]
  - HYPOPARATHYROIDISM [None]
  - SINUS TACHYCARDIA [None]
  - HYPOCALCAEMIA [None]
  - HYPERTHYROIDISM [None]
